FAERS Safety Report 4725797-2 (Version None)
Quarter: 2005Q3

REPORT INFORMATION
  Report Type: 
  Country: None (occurrence: None)
  Receive Date: 20050722
  Receipt Date: 20050722
  Transmission Date: 20060218
  Serious: Yes (Life-Threatening, Hospitalization)
  Sender: FDA-Public Use
  Company Number: None

PATIENT
  Age: 83 Year
  Sex: Female
  Weight: 53 kg

DRUGS (1)
  1. METFORMIN  500MG [Suspect]
     Indication: DIABETES MELLITUS
     Dosage: 1000MG  BID ORAL
     Route: 048

REACTIONS (5)
  - ASTHENIA [None]
  - DIALYSIS [None]
  - LACTIC ACIDOSIS [None]
  - NAUSEA [None]
  - VOMITING [None]
